FAERS Safety Report 13823683 (Version 1)
Quarter: 2017Q3

REPORT INFORMATION
  Report Type: Spontaneous
  Country: IN (occurrence: IN)
  Receive Date: 20170802
  Receipt Date: 20170802
  Transmission Date: 20171127
  Serious: Yes (Life-Threatening)
  Sender: FDA-Public Use
  Company Number: IN-MACLEODS PHARMACEUTICALS US LTD-MAC2017005518

PATIENT

DRUGS (4)
  1. ENALAPRIL [Suspect]
     Active Substance: ENALAPRIL
     Indication: MALIGNANT HYPERTENSION
     Dosage: UNK
     Route: 048
  2. AMLODIPINE BESYLATE. [Suspect]
     Active Substance: AMLODIPINE BESYLATE
     Indication: MALIGNANT HYPERTENSION
     Dosage: UNK
     Route: 065
  3. CLONIDINE. [Suspect]
     Active Substance: CLONIDINE
     Indication: MALIGNANT HYPERTENSION
     Dosage: UNK
     Route: 065
  4. PRAZOSIN. [Suspect]
     Active Substance: PRAZOSIN
     Indication: MALIGNANT HYPERTENSION
     Dosage: UNK
     Route: 065

REACTIONS (2)
  - Drug ineffective [Recovering/Resolving]
  - Off label use [Recovering/Resolving]
